FAERS Safety Report 7948015-0 (Version None)
Quarter: 2011Q4

REPORT INFORMATION
  Report Type: 
  Country: None (occurrence: None)
  Receive Date: 20111125
  Receipt Date: 20111019
  Transmission Date: 20120403
  Serious: Yes (Hospitalization)
  Sender: FDA-Public Use
  Company Number: IND1-FR-2011-0050

PATIENT
  Age: 10 Year
  Sex: Female

DRUGS (3)
  1. METHOTREXATE [Concomitant]
  2. KINERET (ANAKINRA) (INJECTION) (ANAKINRA) [Concomitant]
  3. INDOMETHACIN [Suspect]
     Indication: JUVENILE ARTHRITIS
     Dosage: 50 MG (25 MG, 2 IN 1 D), ORAL
     Route: 048

REACTIONS (8)
  - DEHYDRATION [None]
  - HAEMATOCHEZIA [None]
  - BLOOD CULTURE POSITIVE [None]
  - GENERAL PHYSICAL CONDITION ABNORMAL [None]
  - RENAL FAILURE ACUTE [None]
  - RENAL TUBULAR NECROSIS [None]
  - CULTURE STOOL POSITIVE [None]
  - GASTROENTERITIS SALMONELLA [None]
